FAERS Safety Report 6023418-2 (Version None)
Quarter: 2008Q4

REPORT INFORMATION
  Report Type: 
  Country: None (occurrence: None)
  Receive Date: 20081230
  Receipt Date: 20081229
  Transmission Date: 20090506
  Serious: Yes (Hospitalization)
  Sender: FDA-Public Use
  Company Number: US-BRISTOL-MYERS SQUIBB COMPANY-14457105

PATIENT
  Age: 35 Year
  Sex: Female
  Weight: 73 kg

DRUGS (3)
  1. ABILIFY [Suspect]
     Indication: BIPOLAR DISORDER
     Dosage: STARTED AT A DOSE OF 15MG FURTHER INCREASED TO 30MG
  2. POTASSIUM CITRATE [Concomitant]
  3. NEXIUM [Concomitant]

REACTIONS (1)
  - NEPHROLITHIASIS [None]
